FAERS Safety Report 8448610-9 (Version None)
Quarter: 2012Q2

REPORT INFORMATION
  Report Type: 
  Country: None (occurrence: None)
  Receive Date: 20120619
  Receipt Date: 20120606
  Transmission Date: 20120825
  Serious: Yes (Death, Life-Threatening, Hospitalization, Other)
  Sender: FDA-Public Use
  Company Number: US-MYLANLABS-2009AL004039

PATIENT
  Age: 63 Year
  Sex: Male
  Weight: 124.7 kg

DRUGS (52)
  1. RISPERDAL [Concomitant]
  2. METOLAZONE [Concomitant]
  3. GLYCOLAX [Concomitant]
  4. METRONIDAZOLE [Concomitant]
  5. METOPROLOL SUCCINATE [Concomitant]
  6. DIGOXIN [Suspect]
     Indication: PRODUCT USED FOR UNKNOWN INDICATION
     Route: 048
     Dates: start: 20070527, end: 20080113
  7. LISINOPRIL [Concomitant]
  8. PREDNISONE [Concomitant]
  9. BUMEX [Concomitant]
  10. CELLCEPT [Concomitant]
  11. COREG [Concomitant]
  12. NOVOLIN 70/30 [Concomitant]
  13. ZANTAC [Concomitant]
  14. LIPITOR [Concomitant]
  15. KLONOPIN [Concomitant]
  16. COUMADIN [Concomitant]
  17. SPIRIVA [Concomitant]
     Route: 055
  18. PROPOXYPHENE HCL [Concomitant]
  19. AMLODIPINE BESYLATE [Concomitant]
  20. NEORAL [Concomitant]
  21. GABAPENTIN [Concomitant]
  22. MIRALAX /00754501/ [Concomitant]
  23. PAXIL [Concomitant]
  24. BACTRIM [Concomitant]
  25. POTASSIUM CHLORIDE [Concomitant]
  26. GENGRAF [Concomitant]
  27. NEXIUM [Concomitant]
  28. CLOTRIMAZOLE [Concomitant]
  29. AMOXICILLIN [Concomitant]
  30. NITROFURANTOIN [Concomitant]
  31. NITROLINGUAL [Concomitant]
  32. NYSTATIN [Concomitant]
  33. NORVASC [Concomitant]
  34. DARVOCET [Concomitant]
  35. CALCIUM CARBONATE [Concomitant]
  36. ALBUTEROL [Concomitant]
     Route: 055
  37. AMIODARONE HYDROCHLORIDE [Concomitant]
  38. PROCHLORPERAZINE [Concomitant]
  39. SULFAMETHOXAZOLE [Concomitant]
  40. LEVAQUIN [Concomitant]
  41. COLACE [Concomitant]
  42. PROCRIT /00909301/ [Concomitant]
  43. REPLIVA [Concomitant]
     Dosage: 21/7
  44. DOXAZOSIN MESYLATE [Concomitant]
  45. HUMULIN R [Concomitant]
     Dosage: SLIDING SCALE
  46. AZITHROMYCIN [Concomitant]
  47. TRIAMCINOLONE [Concomitant]
  48. EPOGEN [Concomitant]
  49. ASPIRIN [Concomitant]
  50. ALLOPURINOL [Concomitant]
  51. ADVAIR DISKUS 100/50 [Concomitant]
  52. PEPCID [Concomitant]

REACTIONS (91)
  - SKIN CANCER METASTATIC [None]
  - ATRIAL FIBRILLATION [None]
  - ASTHENIA [None]
  - ASCITES [None]
  - HYPOXIA [None]
  - SEPSIS [None]
  - COUGH [None]
  - RALES [None]
  - RETCHING [None]
  - PAIN IN EXTREMITY [None]
  - HYPERGLYCAEMIA [None]
  - ARTHRALGIA [None]
  - LEUKOCYTOSIS [None]
  - LOCAL SWELLING [None]
  - NAUSEA [None]
  - FLANK PAIN [None]
  - COAGULOPATHY [None]
  - CHRONIC RESPIRATORY FAILURE [None]
  - PLEURAL EFFUSION [None]
  - BREATH SOUNDS ABNORMAL [None]
  - COMPUTERISED TOMOGRAM ABNORMAL [None]
  - ERYTHEMA [None]
  - LUNG NEOPLASM [None]
  - NEPHROLITHIASIS [None]
  - LOCALISED OEDEMA [None]
  - SPLENOMEGALY [None]
  - AXILLARY MASS [None]
  - PNEUMONIA [None]
  - BLOOD URIC ACID INCREASED [None]
  - CONFUSIONAL STATE [None]
  - RENAL IMPAIRMENT [None]
  - LETHARGY [None]
  - UPPER RESPIRATORY TRACT INFECTION [None]
  - WHEEZING [None]
  - DYSPNOEA [None]
  - DEATH [None]
  - CARDIAC FAILURE CONGESTIVE [None]
  - VOMITING [None]
  - SEPTIC SHOCK [None]
  - GENERALISED OEDEMA [None]
  - FLUID OVERLOAD [None]
  - HEPATIC LESION [None]
  - JOINT RANGE OF MOTION DECREASED [None]
  - OSTEOARTHRITIS [None]
  - POSITRON EMISSION TOMOGRAM ABNORMAL [None]
  - RESTLESS LEGS SYNDROME [None]
  - CARDIAC MURMUR [None]
  - THROMBOPHLEBITIS SUPERFICIAL [None]
  - RENAL DISORDER [None]
  - PANCYTOPENIA [None]
  - ENDOTRACHEAL INTUBATION [None]
  - METASTATIC LYMPHOMA [None]
  - METASTATIC SQUAMOUS CELL CARCINOMA [None]
  - RESPIRATORY DISTRESS [None]
  - ABSCESS LIMB [None]
  - CHEST PAIN [None]
  - PRURITUS [None]
  - TOXICITY TO VARIOUS AGENTS [None]
  - BLOOD CREATININE INCREASED [None]
  - CHEMOTHERAPY [None]
  - HYPOKALAEMIA [None]
  - INTERNATIONAL NORMALISED RATIO INCREASED [None]
  - ANURIA [None]
  - DISEASE RECURRENCE [None]
  - MITRAL VALVE INCOMPETENCE [None]
  - X-RAY ABNORMAL [None]
  - DEHYDRATION [None]
  - FATIGUE [None]
  - LABORATORY TEST ABNORMAL [None]
  - PROTHROMBIN LEVEL INCREASED [None]
  - ACUTE RESPIRATORY FAILURE [None]
  - RENAL FAILURE ACUTE [None]
  - ANAEMIA [None]
  - CHRONIC OBSTRUCTIVE PULMONARY DISEASE [None]
  - DECREASED ACTIVITY [None]
  - ECHOCARDIOGRAM ABNORMAL [None]
  - ORTHOPNOEA [None]
  - OEDEMA PERIPHERAL [None]
  - GOUTY ARTHRITIS [None]
  - ARTHRITIS [None]
  - CELLULITIS [None]
  - ASTHMA [None]
  - ATELECTASIS [None]
  - LEFT VENTRICULAR HYPERTROPHY [None]
  - RENAL TUBULAR NECROSIS [None]
  - ANXIETY [None]
  - PYREXIA [None]
  - GRANULOMATOUS LIVER DISEASE [None]
  - HAEMODIALYSIS [None]
  - RHONCHI [None]
  - URINE OUTPUT DECREASED [None]
